FAERS Safety Report 5590418-6 (Version None)
Quarter: 2008Q1

REPORT INFORMATION
  Report Type: 
  Country: None (occurrence: None)
  Receive Date: 20080114
  Receipt Date: 20071119
  Transmission Date: 20080703
  Serious: No
  Sender: FDA-Public Use
  Company Number: US-ABBOTT-07P-163-0425758-00

PATIENT
  Sex: Male

DRUGS (4)
  1. HYTRIN [Suspect]
     Indication: BLOOD PRESSURE ABNORMAL
     Route: 048
  2. METOPROLOL SUCCINATE [Concomitant]
     Indication: BLOOD PRESSURE ABNORMAL
  3. IRBESARTAN [Concomitant]
     Indication: BLOOD PRESSURE ABNORMAL
  4. AMLODIPINE [Concomitant]
     Indication: BLOOD PRESSURE ABNORMAL

REACTIONS (1)
  - BLOOD PRESSURE ABNORMAL [None]
